FAERS Safety Report 6955918-2 (Version None)
Quarter: 2010Q3

REPORT INFORMATION
  Report Type: 
  Country: None (occurrence: None)
  Receive Date: 20100826
  Receipt Date: 20100826
  Transmission Date: 20110219
  Serious: Yes (Disabling)
  Sender: FDA-Public Use
  Company Number: None

PATIENT
  Sex: Female
  Weight: 72.5755 kg

DRUGS (1)
  1. REVLIMID [Suspect]
     Indication: MULTIPLE MYELOMA
     Dosage: 1 CPSULE DAILY PO
     Route: 048
     Dates: start: 20100819, end: 20100822

REACTIONS (3)
  - HAEMORRHAGE [None]
  - PRURITUS [None]
  - SCRATCH [None]
